FAERS Safety Report 19173339 (Version 1)
Quarter: 2021Q2

REPORT INFORMATION
  Report Type: Spontaneous
  Country: US (occurrence: US)
  Receive Date: 20210423
  Receipt Date: 20210423
  Transmission Date: 20210717
  Serious: No
  Sender: FDA-Public Use
  Company Number: US-APPCO PHARMA LLC-2109680

PATIENT
  Sex: Female

DRUGS (1)
  1. HYDROXYCHLOROQUINE SULFATE. [Suspect]
     Active Substance: HYDROXYCHLOROQUINE SULFATE
     Indication: JOINT STIFFNESS
     Route: 065

REACTIONS (8)
  - Pruritus [Not Recovered/Not Resolved]
  - Wrong technique in product usage process [Unknown]
  - Epistaxis [Not Recovered/Not Resolved]
  - Joint swelling [Not Recovered/Not Resolved]
  - Urticaria [Not Recovered/Not Resolved]
  - Underdose [Unknown]
  - Product dose omission issue [Unknown]
  - Lip swelling [Not Recovered/Not Resolved]
